FAERS Safety Report 10053664 (Version 1)
Quarter: 2014Q2

REPORT INFORMATION
  Report Type: Report from Study
  Country: US (occurrence: US)
  Receive Date: 20140402
  Receipt Date: 20140402
  Transmission Date: 20141212
  Serious: Yes (Hospitalization)
  Sender: FDA-Public Use
  Company Number: US-BAXTER-2014BAX015461

PATIENT
  Age: 60 Year
  Sex: Female

DRUGS (2)
  1. ARALAST NP [Suspect]
     Indication: PRODUCT USED FOR UNKNOWN INDICATION
     Route: 042
  2. OXYGEN [Concomitant]
     Indication: EMPHYSEMA
     Route: 065

REACTIONS (2)
  - Hypercapnia [Unknown]
  - Headache [Unknown]
